FAERS Safety Report 6169855-7 (Version None)
Quarter: 2009Q2

REPORT INFORMATION
  Report Type: 
  Country: None (occurrence: None)
  Receive Date: 20090428
  Receipt Date: 20090418
  Transmission Date: 20091009
  Serious: Yes (Other)
  Sender: FDA-Public Use
  Company Number: BR-AVENTIS-200914148GDDC

PATIENT
  Age: 1 Year
  Sex: Male

DRUGS (1)
  1. ALLEGRA [Suspect]
     Route: 048
     Dates: start: 20090417

REACTIONS (1)
  - FAECES DISCOLOURED [None]
